FAERS Safety Report 8288962-6 (Version None)
Quarter: 2012Q2

REPORT INFORMATION
  Report Type: 
  Country: None (occurrence: None)
  Receive Date: 20120412
  Receipt Date: 20120410
  Transmission Date: 20120825
  Serious: Yes (Other)
  Sender: FDA-Public Use
  Company Number: ADR-2011-11220

PATIENT
  Sex: Male

DRUGS (1)
  1. LIORESAL [Suspect]
     Indication: MUSCLE SPASTICITY
     Dosage: MCG, DAILY, INTRATH
     Route: 037

REACTIONS (7)
  - UNDERDOSE [None]
  - MENTAL DISORDER [None]
  - IMPLANT SITE EFFUSION [None]
  - ABDOMINAL DISTENSION [None]
  - MUSCLE SPASTICITY [None]
  - HALLUCINATION, VISUAL [None]
  - IMPLANT SITE INFLAMMATION [None]
